FAERS Safety Report 10994174 (Version 1)
Quarter: 2015Q2

REPORT INFORMATION
  Report Type: Spontaneous
  Country: US (occurrence: None)
  Receive Date: 20150403
  Receipt Date: 20150403
  Transmission Date: 20150821
  Serious: Yes (Other)
  Sender: FDA-Public Use
  Company Number: CIO15019436

PATIENT
  Sex: Female

DRUGS (1)
  1. PEPTO-BISMOL [Suspect]
     Active Substance: BISMUTH SUBSALICYLATE\CALCIUM CARBONATE
     Route: 048

REACTIONS (1)
  - Coma [None]
